FAERS Safety Report 4535931-5 (Version None)
Quarter: 2004Q4

REPORT INFORMATION
  Report Type: 
  Country: None (occurrence: None)
  Receive Date: 20041220
  Receipt Date: 20041207
  Transmission Date: 20050328
  Serious: Yes (Other)
  Sender: FDA-Public Use
  Company Number: 2004106898

PATIENT
  Sex: Male
  Weight: 62.5964 kg

DRUGS (4)
  1. CELEBREX [Suspect]
     Indication: ARTHRITIS
     Dosage: ORAL
     Route: 048
     Dates: start: 20041205
  2. IBUPROFEN [Suspect]
     Indication: ILL-DEFINED DISORDER
     Dosage: ORAL
     Route: 048
  3. ATORVASTATIN (ATORVASTATIN) [Concomitant]
  4. ALENDRONATE SODIUM [Concomitant]

REACTIONS (6)
  - ARTHRITIS [None]
  - GASTROINTESTINAL HAEMORRHAGE [None]
  - JOINT DISLOCATION [None]
  - POLYTRAUMATISM [None]
  - ROAD TRAFFIC ACCIDENT [None]
  - UPPER LIMB FRACTURE [None]
